FAERS Safety Report 6688489-9 (Version None)
Quarter: 2010Q2

REPORT INFORMATION
  Report Type: 
  Country: None (occurrence: None)
  Receive Date: 20100420
  Receipt Date: 20100409
  Transmission Date: 20101027
  Serious: Yes (Hospitalization)
  Sender: FDA-Public Use
  Company Number: US-BAYER-201021908GPV

PATIENT
  Age: 55 Year
  Sex: Male

DRUGS (2)
  1. ASPIRIN [Suspect]
     Indication: ALLERGENIC DESENSITISATION PROCEDURE
     Route: 048
  2. ASPIRIN [Suspect]

REACTIONS (3)
  - ABDOMINAL PAIN UPPER [None]
  - ALLERGIC RESPIRATORY DISEASE [None]
  - PANCREATITIS [None]
